FAERS Safety Report 20094409 (Version 1)
Quarter: 2021Q4

REPORT INFORMATION
  Report Type: Spontaneous
  Country: US (occurrence: US)
  Receive Date: 20211122
  Receipt Date: 20211122
  Transmission Date: 20220303
  Serious: Yes (Other)
  Sender: FDA-Public Use
  Company Number: US-TEVA-2021-US-1978577

PATIENT
  Age: 77 Year
  Sex: Female

DRUGS (2)
  1. QVAR REDIHALER [Suspect]
     Active Substance: BECLOMETHASONE DIPROPIONATE
     Indication: Asthma
     Dosage: STARTED TREATMENT WITH THE MEDICATION 3 OR 4 MONTHS AGO/2 PUFFS TWICE DAILY
     Route: 065
  2. CALTRATE [Concomitant]
     Active Substance: CALCIUM CARBONATE
     Dosage: ONE-A-DAY

REACTIONS (8)
  - Hallucination [Unknown]
  - Drug intolerance [Unknown]
  - Insomnia [Unknown]
  - Fatigue [Unknown]
  - Feeling abnormal [Unknown]
  - Headache [Unknown]
  - Abdominal discomfort [Unknown]
  - Illness [Unknown]
